FAERS Safety Report 7280054-8 (Version None)
Quarter: 2011Q1

REPORT INFORMATION
  Report Type: 
  Country: None (occurrence: None)
  Receive Date: 20110126
  Receipt Date: 20110114
  Transmission Date: 20110831
  Serious: Yes (Other)
  Sender: FDA-Public Use
  Company Number: RB-19245-2011

PATIENT
  Age: 60 Year
  Sex: Female

DRUGS (3)
  1. MUCINEX [Suspect]
     Indication: COUGH
     Dosage: (600 MG TOTAL, PATIENT TOOK ONE TABLET 30 MINUTES AGO, ORAL)
     Route: 048
  2. MUCINEX [Suspect]
     Indication: RESPIRATORY TRACT CONGESTION
     Dosage: (600 MG TOTAL, PATIENT TOOK ONE TABLET 30 MINUTES AGO, ORAL)
     Route: 048
  3. DIOVAN [Concomitant]

REACTIONS (4)
  - BLOOD PRESSURE SYSTOLIC INCREASED [None]
  - HEART RATE INCREASED [None]
  - AGITATION [None]
  - PALPITATIONS [None]
